FAERS Safety Report 7176334-7 (Version None)
Quarter: 2010Q4

REPORT INFORMATION
  Report Type: 
  Country: None (occurrence: None)
  Receive Date: 20101220
  Receipt Date: 20101206
  Transmission Date: 20110411
  Serious: No
  Sender: FDA-Public Use
  Company Number: US-PFIZER INC-2010167355

PATIENT
  Age: 81 Year
  Sex: Female

DRUGS (1)
  1. ADVIL [Suspect]
     Indication: ARTHRALGIA
     Dosage: 1-2 TABLETS, 2X/DAY
     Route: 048
     Dates: start: 20101129

REACTIONS (1)
  - CONSTIPATION [None]
